FAERS Safety Report 5887672-X (Version None)
Quarter: 2008Q3

REPORT INFORMATION
  Report Type: 
  Country: None (occurrence: None)
  Receive Date: 20080918
  Receipt Date: 20080910
  Transmission Date: 20090109
  Serious: Yes (Hospitalization, Other)
  Sender: FDA-Public Use
  Company Number: JP-BRISTOL-MYERS SQUIBB COMPANY-14276018

PATIENT
  Age: 36 Year
  Sex: Female

DRUGS (7)
  1. MITOMYCIN [Suspect]
     Indication: CERVIX CARCINOMA
     Dosage: ALSO TAKEN AS 15MG FROM 21MAR08 TO 04APR08.
     Route: 041
     Dates: start: 20080709, end: 20080709
  2. TAXOL [Suspect]
     Indication: CERVIX CARCINOMA
     Dosage: 100MG(6JUN06-AUG06),110MG(SEP-NOV06),70MG(FEB07-FEB07),90MG(12OCT-NOV07),90MG(DEC07-FEB08) IJ.
     Dates: start: 20071012, end: 20080201
  3. PARAPLATIN [Suspect]
     Indication: CERVIX CARCINOMA
     Dosage: 750MG(JUN06-NOV06),600MG(DEC07-FEB08) ROUTE-IJ
     Dates: start: 20060601, end: 20080201
  4. CISPLATIN [Suspect]
     Indication: CERVIX CARCINOMA
     Dosage: ROUTE-IJ
     Dates: start: 20071012, end: 20071101
  5. AQUPLA [Suspect]
     Indication: CERVIX CARCINOMA
     Dosage: DOSE-600 MG/D, ROUTE-IJ
     Dates: start: 20041208, end: 20050426
  6. TOPOTECIN [Suspect]
     Indication: CERVIX CARCINOMA
     Dosage: ROUTE-IJ
     Dates: start: 20070531, end: 20070801
  7. RADIOTHERAPY [Suspect]
     Dosage: (PELVIS-56GY.INTRACAVITY-12GY.PARA-AORTIC-52.9GY)IN 2006-50GY-HILAR MEDIASTINAL LYMPHNODE MTSTASIS.
     Dates: start: 20041130, end: 20060101

REACTIONS (5)
  - ARTHRALGIA [None]
  - BONE MARROW FAILURE [None]
  - FUNGAL INFECTION [None]
  - LYMPHANGIOSIS CARCINOMATOSA [None]
  - PNEUMONIA [None]
